FAERS Safety Report 5647144-4 (Version None)
Quarter: 2008Q1

REPORT INFORMATION
  Report Type: 
  Country: None (occurrence: None)
  Receive Date: 20080131
  Receipt Date: 20071205
  Transmission Date: 20080703
  Serious: No
  Sender: FDA-Public Use
  Company Number: 163-21880-07120334

PATIENT
  Age: 60 Year
  Sex: Female

DRUGS (5)
  1. REVLIMID [Suspect]
     Indication: MULTIPLE MYELOMA
     Dosage: 15 MG, DAILY ON DAYS 1 - 14 AND 22 - 28, ORAL ; 15 MG, DAILY ON DAYS 1 - 14 AND 22 - 28, ORAL
     Route: 048
     Dates: start: 20061115, end: 20070218
  2. REVLIMID [Suspect]
     Indication: MULTIPLE MYELOMA
     Dosage: 15 MG, DAILY ON DAYS 1 - 14 AND 22 - 28, ORAL ; 15 MG, DAILY ON DAYS 1 - 14 AND 22 - 28, ORAL
     Route: 048
     Dates: start: 20070824
  3. FOLIC ACID [Concomitant]
  4. DEXAMETHASONE TAB [Concomitant]
  5. MULTIVITAMIN [Concomitant]

REACTIONS (3)
  - LIVER FUNCTION TEST ABNORMAL [None]
  - MUSCLE SPASMS [None]
  - URINARY TRACT INFECTION [None]
